FAERS Safety Report 9468396 (Version 1)
Quarter: 2013Q3

REPORT INFORMATION
  Report Type: Spontaneous
  Country: CH (occurrence: CH)
  Receive Date: 20130821
  Receipt Date: 20130821
  Transmission Date: 20140515
  Serious: Yes (Other)
  Sender: FDA-Public Use
  Company Number: PHHY2013CH089094

PATIENT
  Sex: Male
  Weight: 1.8 kg

DRUGS (8)
  1. METO ZEROK [Suspect]
     Route: 064
  2. ATENOLOL [Suspect]
     Dosage: MATERNAL DOSE: 25 MG BID
     Route: 064
  3. ARANESP [Suspect]
     Dosage: 30 UG, QW
     Route: 064
  4. LOPRIL [Suspect]
     Dosage: 10 MG, QD
     Route: 064
     Dates: end: 20120916
  5. ADALAT [Suspect]
     Dosage: MATERNAL DOSE 30 MG TID
     Route: 064
  6. ASPIRIN CARDIO 100 MG FILM-COATED TABLETS [Suspect]
     Dosage: MATERNAL DOSE: 100 MG QD
     Route: 064
  7. CALCITRIOL [Concomitant]
     Route: 064
  8. ELEVIT PRONATAL [Concomitant]
     Route: 064

REACTIONS (5)
  - Premature baby [Recovered/Resolved]
  - Foetal growth restriction [Recovered/Resolved]
  - Neonatal respiratory distress syndrome [Recovered/Resolved]
  - Neonatal hypotension [Recovered/Resolved]
  - Atrial septal defect [Unknown]
